FAERS Safety Report 17029103 (Version 3)
Quarter: 2020Q2

REPORT INFORMATION
  Report Type: Spontaneous
  Country: ES (occurrence: ES)
  Receive Date: 20191114
  Receipt Date: 20200507
  Transmission Date: 20200713
  Serious: Yes (Death, Disabling, Other)
  Sender: FDA-Public Use
  Company Number: ES-RECORDATI RARE DISEASES-2076836

PATIENT
  Age: 6 Year
  Sex: Female
  Weight: 18 kg

DRUGS (8)
  1. CARBAGLU [Suspect]
     Active Substance: CARGLUMIC ACID
     Route: 048
     Dates: start: 201901, end: 201910
  2. BICARBONATE [Concomitant]
     Active Substance: SODIUM BICARBONATE
  3. CARBAGLU [Suspect]
     Active Substance: CARGLUMIC ACID
     Dates: start: 20191022, end: 20191203
  4. CARBAGLU [Suspect]
     Active Substance: CARGLUMIC ACID
     Indication: HYPERAMMONAEMIA
     Route: 048
     Dates: start: 201810, end: 201901
  5. ISOLEUCINE [Concomitant]
     Active Substance: ISOLEUCINE
  6. CARBAGLU [Suspect]
     Active Substance: CARGLUMIC ACID
     Dates: start: 201910
  7. VITAMIN D [Concomitant]
     Active Substance: VITAMIN D NOS
  8. TIAMIN [Concomitant]

REACTIONS (2)
  - Hyperthyroidism [Not Recovered/Not Resolved]
  - Gastroenteritis [Unknown]

NARRATIVE: CASE EVENT DATE: 20190101
